FAERS Safety Report 4614732-3 (Version None)
Quarter: 2005Q2

REPORT INFORMATION
  Report Type: 
  Country: None (occurrence: None)
  Receive Date: 20050310
  Receipt Date: 20041223
  Transmission Date: 20051028
  Serious: Yes (Other)
  Sender: FDA-Public Use
  Company Number: A03200404349

PATIENT

DRUGS (1)
  1. ELOXATIN - OXAPLATIN - SOLUTION [Suspect]
     Dosage: INTRAVENOUS NOS
     Route: 042

REACTIONS (2)
  - FACE OEDEMA [None]
  - RASH [None]
